FAERS Safety Report 11697193 (Version 3)
Quarter: 2015Q4

REPORT INFORMATION
  Report Type: Report from Study
  Country: KR (occurrence: KR)
  Receive Date: 20151104
  Receipt Date: 20151210
  Transmission Date: 20160304
  Serious: Yes (Death)
  Sender: FDA-Public Use
  Company Number: KR-JNJFOC-20151009347

PATIENT
  Sex: Female
  Weight: 45 kg

DRUGS (13)
  1. XARELTO [Suspect]
     Active Substance: RIVAROXABAN
     Indication: THROMBOSIS PROPHYLAXIS
     Dosage: TOTAL DAILY DOSE
     Route: 048
     Dates: start: 20140115, end: 20140223
  2. CYANOCOBALAMIN. [Concomitant]
     Active Substance: CYANOCOBALAMIN
     Dosage: TOTAL DAILY DOSE
     Route: 065
     Dates: start: 20120220
  3. CONCOR [Concomitant]
     Active Substance: BISOPROLOL FUMARATE
     Dosage: TOTAL DAILY DOSE
     Route: 065
     Dates: start: 20130925
  4. DEPAS [Concomitant]
     Active Substance: ETIZOLAM
     Dosage: TOTAL DAILY DOSE
     Route: 065
     Dates: start: 20140115
  5. HERBEN [Concomitant]
     Dosage: TOTAL DAILY DOSE
     Route: 065
     Dates: start: 20131218
  6. DIGOXIN. [Concomitant]
     Active Substance: DIGOXIN
     Route: 065
     Dates: start: 20130925
  7. ACERTIL [Concomitant]
     Route: 065
     Dates: start: 20130925
  8. XARELTO [Suspect]
     Active Substance: RIVAROXABAN
     Indication: ATRIAL FIBRILLATION
     Dosage: TOTAL DAILY DOSE
     Route: 048
     Dates: start: 20140115, end: 20140223
  9. XARELTO [Suspect]
     Active Substance: RIVAROXABAN
     Indication: CEREBROVASCULAR ACCIDENT PROPHYLAXIS
     Dosage: TOTAL DAILY DOSE
     Route: 048
     Dates: start: 20140115, end: 20140223
  10. LASIX [Concomitant]
     Active Substance: FUROSEMIDE
     Dosage: TOTAL DAILY DOSE
     Route: 065
     Dates: start: 20130415
  11. ALDACTONE [Concomitant]
     Active Substance: SPIRONOLACTONE
     Dosage: TOTAL DAILY DOSE
     Route: 065
     Dates: start: 20130415
  12. ALBIS [Concomitant]
     Active Substance: BISMUTH SUBCITRATE\RANITIDINE HYDROCHLORIDE\SUCRALFATE
     Route: 065
     Dates: start: 20140115
  13. GLUCOPHAGE [Concomitant]
     Active Substance: METFORMIN HYDROCHLORIDE
     Dosage: TOTAL DAILY DOSE
     Route: 065
     Dates: start: 20121105

REACTIONS (2)
  - Coma [Fatal]
  - Ischaemic stroke [Fatal]

NARRATIVE: CASE EVENT DATE: 20140222
